FAERS Safety Report 7621602-5 (Version None)
Quarter: 2011Q3

REPORT INFORMATION
  Report Type: 
  Country: None (occurrence: None)
  Receive Date: 20110719
  Receipt Date: 20110711
  Transmission Date: 20111222
  Serious: Yes (Hospitalization, Other)
  Sender: FDA-Public Use
  Company Number: PHEH2007US12302

PATIENT
  Sex: Female
  Weight: 87.528 kg

DRUGS (54)
  1. LAMISIL                            /00992601/ [Concomitant]
  2. NEURONTIN [Concomitant]
  3. ZITHROMAX [Concomitant]
  4. VITAMIN TAB [Concomitant]
  5. ZOMETA [Suspect]
  6. UNASYN [Concomitant]
  7. CYTOXAN [Concomitant]
  8. OXYCODONE HCL [Concomitant]
  9. HYDROCORTISONE [Concomitant]
  10. PROMETHAZINE [Concomitant]
  11. TOPROL-XL [Concomitant]
  12. LOPROX [Concomitant]
  13. LEVAQUIN [Concomitant]
  14. ATIVAN [Concomitant]
  15. DEMEROL [Concomitant]
  16. CYCLOPHOSPHAMIDE [Concomitant]
  17. AVELOX [Concomitant]
  18. DILAUDID [Concomitant]
  19. ROXANOL [Concomitant]
  20. AREDIA [Suspect]
     Dosage: 60 MG, QMO
     Route: 042
  21. MULTI-VITAMINS [Concomitant]
  22. SOLU-MEDROL [Concomitant]
  23. DIPHENHYDRAMINE HCL [Concomitant]
  24. KLOR-CON [Concomitant]
  25. LASIX [Concomitant]
  26. POTASSIUM CHLORIDE [Concomitant]
  27. LIDODERM [Concomitant]
  28. METOPROLOL TARTRATE [Concomitant]
  29. MS CONTIN [Concomitant]
  30. BIAXIN [Concomitant]
  31. LEVAQUIN [Concomitant]
  32. COLACE [Concomitant]
  33. ALEVE                              /00256202/ [Concomitant]
  34. CALCIUM CARBONATE [Concomitant]
  35. DOXYCYCLINE [Concomitant]
     Dosage: 100 MG, UNK
     Dates: start: 20010407
  36. FLUVAX [Concomitant]
  37. DURAGESIC-100 [Concomitant]
  38. NEXIUM [Concomitant]
  39. STEROIDS NOS [Concomitant]
  40. ZOLPIDEM [Concomitant]
  41. MIRALAX [Concomitant]
  42. XANAX [Concomitant]
     Dosage: 0.5 MG, UNK
  43. FRIVENT [Concomitant]
     Dosage: 110
  44. PREMPRO [Concomitant]
  45. FLOXIN ^DAIICHI^ [Concomitant]
  46. ALKERAN [Concomitant]
  47. MELPHALAN HYDROCHLORIDE [Concomitant]
  48. METHADONE HCL [Concomitant]
  49. KLONOPIN [Concomitant]
  50. PREDNISONE [Concomitant]
     Dosage: 20 MG, UNK
  51. FLEXERIL [Concomitant]
  52. CIPRO [Concomitant]
  53. AMBIEN [Concomitant]
  54. OXAZEPAM [Concomitant]

REACTIONS (100)
  - HYPERHIDROSIS [None]
  - OXYGEN SATURATION DECREASED [None]
  - PAIN [None]
  - HYPOPHAGIA [None]
  - PHYSICAL DISABILITY [None]
  - DENTAL CARIES [None]
  - TENDERNESS [None]
  - BETA 2 MICROGLOBULIN INCREASED [None]
  - METASTASES TO SPINE [None]
  - MYOSITIS [None]
  - PLANTAR FASCIITIS [None]
  - SINUS CONGESTION [None]
  - DYSPNOEA [None]
  - LYMPHADENOPATHY [None]
  - PARATHYROID TUMOUR BENIGN [None]
  - LIGHT CHAIN ANALYSIS [None]
  - DISEASE PROGRESSION [None]
  - MYALGIA [None]
  - FACIAL PAIN [None]
  - INTERVERTEBRAL DISC PROTRUSION [None]
  - OSTEOPENIA [None]
  - PLASMACYTOSIS [None]
  - COMPRESSION FRACTURE [None]
  - FOOT FRACTURE [None]
  - ASTHENIA [None]
  - RENAL CYST [None]
  - NAUSEA [None]
  - CHILLS [None]
  - SYSTEMIC INFLAMMATORY RESPONSE SYNDROME [None]
  - SEPSIS [None]
  - OSTEONECROSIS OF JAW [None]
  - BONE DISORDER [None]
  - HAIR FOLLICLE TUMOUR BENIGN [None]
  - COUGH [None]
  - BURNING SENSATION [None]
  - OSTEONECROSIS [None]
  - FATIGUE [None]
  - ABDOMINAL DISTENSION [None]
  - PNEUMONIA [None]
  - NASAL CONGESTION [None]
  - OROPHARYNGEAL PAIN [None]
  - DISCOMFORT [None]
  - EMOTIONAL DISTRESS [None]
  - DENTURE WEARER [None]
  - POLYNEUROPATHY [None]
  - BONE PAIN [None]
  - EXOSTOSIS [None]
  - PAIN IN EXTREMITY [None]
  - GLOMERULAR FILTRATION RATE DECREASED [None]
  - TENDONITIS [None]
  - TACHYCARDIA [None]
  - GENERALISED OEDEMA [None]
  - ABDOMINAL DISCOMFORT [None]
  - ACUTE RESPIRATORY DISTRESS SYNDROME [None]
  - BODY TEMPERATURE INCREASED [None]
  - RHONCHI [None]
  - LIFE EXPECTANCY SHORTENED [None]
  - ANHEDONIA [None]
  - PLEURITIC PAIN [None]
  - METASTASES TO BONE [None]
  - ANISOCYTOSIS [None]
  - OEDEMA PERIPHERAL [None]
  - HYPERTENSION [None]
  - UPPER RESPIRATORY TRACT INFECTION [None]
  - LUNG CONSOLIDATION [None]
  - HAEMOPHILUS INFECTION [None]
  - POOR PERSONAL HYGIENE [None]
  - MULTIPLE MYELOMA [None]
  - TOXICITY TO VARIOUS AGENTS [None]
  - NEUROPATHY PERIPHERAL [None]
  - PARAESTHESIA [None]
  - BONE LESION [None]
  - PROTEIN URINE ABSENT [None]
  - CERVICAL DYSPLASIA [None]
  - HYPERTROPHY [None]
  - BACK PAIN [None]
  - ABDOMINAL PAIN UPPER [None]
  - BLOOD LACTATE DEHYDROGENASE INCREASED [None]
  - WHEEZING [None]
  - INFECTION [None]
  - ANXIETY [None]
  - THYROID NEOPLASM [None]
  - BRONCHITIS [None]
  - PROCEDURAL PAIN [None]
  - RENAL FAILURE [None]
  - GIANT CELL TUMOUR OF TENDON SHEATH [None]
  - BLOOD CALCIUM DECREASED [None]
  - BLOOD TRIGLYCERIDES INCREASED [None]
  - BLOOD GLUCOSE INCREASED [None]
  - LOWER RESPIRATORY TRACT INFECTION [None]
  - FUNGAL INFECTION [None]
  - DEFORMITY [None]
  - INJURY [None]
  - DEPRESSION [None]
  - NODULE [None]
  - MONOCLONAL IMMUNOGLOBULIN PRESENT [None]
  - INTESTINAL OBSTRUCTION [None]
  - RIB FRACTURE [None]
  - OS TRIGONUM SYNDROME [None]
  - GROIN PAIN [None]
